FAERS Safety Report 8175879-0 (Version None)
Quarter: 2012Q1

REPORT INFORMATION
  Report Type: 
  Country: None (occurrence: None)
  Receive Date: 20120301
  Receipt Date: 20120222
  Transmission Date: 20120608
  Serious: Yes (Other)
  Sender: FDA-Public Use
  Company Number: US-CELGENEUS-163-20785-12021086

PATIENT
  Sex: Female
  Weight: 73.548 kg

DRUGS (10)
  1. THALOMID [Suspect]
     Dosage: 50 MILLIGRAM
     Route: 048
     Dates: start: 20120101, end: 20120207
  2. SYNTHROID [Concomitant]
     Route: 065
  3. ESTRACE [Concomitant]
     Route: 065
  4. GABAPENTIN [Concomitant]
     Route: 065
  5. FLUTISONE [Concomitant]
     Route: 065
  6. THALOMID [Suspect]
     Dosage: 200 MILLIGRAM
     Route: 048
     Dates: start: 20100801, end: 20100101
  7. THALOMID [Suspect]
     Dosage: 50 MILLIGRAM
     Route: 048
     Dates: start: 20110701
  8. ASPIRIN [Concomitant]
     Route: 065
  9. THALOMID [Suspect]
     Indication: MULTIPLE MYELOMA
     Dosage: 50 MILLIGRAM
     Route: 048
     Dates: start: 20081101
  10. TEMAZEPAM [Concomitant]
     Route: 065

REACTIONS (3)
  - NEUROPATHY PERIPHERAL [None]
  - ARTHROPATHY [None]
  - DRUG INEFFECTIVE [None]
